FAERS Safety Report 5788237-0 (Version None)
Quarter: 2008Q2

REPORT INFORMATION
  Report Type: 
  Country: None (occurrence: None)
  Receive Date: 20080623
  Receipt Date: 20080612
  Transmission Date: 20081010
  Serious: Yes (Hospitalization)
  Sender: FDA-Public Use
  Company Number: 234124J08USA

PATIENT
  Age: 44 Year
  Sex: Female
  Weight: 39.9165 kg

DRUGS (6)
  1. REBIF [Suspect]
     Indication: MULTIPLE SCLEROSIS
     Dosage: 44 MCG,  SUBCUTANEOUS
     Route: 058
     Dates: start: 20080304, end: 20080422
  2. FIORICET [Suspect]
     Indication: MIGRAINE
     Dosage: ORAL
     Route: 048
     Dates: start: 20080101
  3. FIORICET [Suspect]
     Indication: MULTIPLE SCLEROSIS
     Dosage: ORAL
     Route: 048
     Dates: start: 20080101
  4. SEROQUEL [Concomitant]
  5. CLONAZEPAM [Concomitant]
  6. VALTREX [Concomitant]

REACTIONS (10)
  - CONFUSIONAL STATE [None]
  - DISORIENTATION [None]
  - DRUG DEPENDENCE [None]
  - DYSKINESIA [None]
  - MEDICATION ERROR [None]
  - MIGRAINE [None]
  - PAIN [None]
  - PETIT MAL EPILEPSY [None]
  - SELF INJURIOUS BEHAVIOUR [None]
  - TIC [None]
